FAERS Safety Report 7268106-X (Version None)
Quarter: 2011Q1

REPORT INFORMATION
  Report Type: 
  Country: None (occurrence: None)
  Receive Date: 20110201
  Receipt Date: 20110126
  Transmission Date: 20110831
  Serious: Yes (Other)
  Sender: FDA-Public Use
  Company Number: US-PFIZER INC-2011019351

PATIENT
  Sex: Male
  Weight: 158.73 kg

DRUGS (2)
  1. TORISEL [Suspect]
     Dosage: UNK
     Dates: start: 20101222, end: 20110112
  2. ENALAPRIL MALEATE [Concomitant]
     Indication: HYPERTENSION
     Dosage: UNK

REACTIONS (2)
  - HYPERSENSITIVITY [None]
  - DYSPNOEA [None]
